FAERS Safety Report 18797345 (Version 1)
Quarter: 2021Q1

REPORT INFORMATION
  Report Type: Spontaneous
  Country: US (occurrence: US)
  Receive Date: 20210128
  Receipt Date: 20210128
  Transmission Date: 20210419
  Serious: No
  Sender: FDA-Public Use
  Company Number: US-009507513-2101USA012538

PATIENT
  Age: 19 Year
  Sex: Female
  Weight: 50.35 kg

DRUGS (1)
  1. NUVARING [Suspect]
     Active Substance: ETHINYL ESTRADIOL\ETONOGESTREL
     Indication: CONTRACEPTION
     Dosage: ONE RING EVERY 3?4 WEEKS
     Route: 067
     Dates: start: 201912, end: 20210120

REACTIONS (4)
  - Fatigue [Recovering/Resolving]
  - Hunger [Recovering/Resolving]
  - Vaginal haemorrhage [Recovering/Resolving]
  - Nausea [Recovering/Resolving]

NARRATIVE: CASE EVENT DATE: 202101
